FAERS Safety Report 8085901-8 (Version None)
Quarter: 2012Q1

REPORT INFORMATION
  Report Type: 
  Country: None (occurrence: None)
  Receive Date: 20120128
  Receipt Date: 20110501
  Transmission Date: 20120608
  Serious: No
  Sender: FDA-Public Use
  Company Number: US-ABBOTT-11P-163-0722870-00

PATIENT
  Age: 66 Year
  Sex: Female

DRUGS (11)
  1. GABAPENTIN [Concomitant]
     Indication: PAIN
  2. HUMIRA [Suspect]
     Indication: RHEUMATOID ARTHRITIS
     Dates: start: 20110401
  3. SIMVASTATIN [Concomitant]
     Indication: BLOOD CHOLESTEROL INCREASED
  4. METHOTREXATE [Concomitant]
     Indication: RHEUMATOID ARTHRITIS
  5. HYDROCODONE BITARTRATE [Concomitant]
     Indication: PAIN
     Dosage: 5/325; AS NEEDED
  6. COMPAZINE [Concomitant]
     Indication: PRODUCT USED FOR UNKNOWN INDICATION
  7. VITAMIN D [Concomitant]
     Indication: VITAMIN SUPPLEMENTATION
  8. FOLIC ACID [Concomitant]
     Indication: VITAMIN SUPPLEMENTATION
  9. FOSAMAX PLUS D [Concomitant]
     Indication: OSTEOPOROSIS
     Dosage: 70MG-2800U ONCE A WEEK
  10. LISINOPRIL [Concomitant]
     Indication: HYPERTENSION
  11. PREDNISONE TAB [Concomitant]
     Indication: ARTHRALGIA

REACTIONS (1)
  - INJECTION SITE PAIN [None]
